FAERS Safety Report 8826574 (Version 1)
Quarter: 2012Q4

REPORT INFORMATION
  Report Type: 
  Country: DE (occurrence: DE)
  Receive Date: 20121007
  Receipt Date: 20121007
  Transmission Date: 20130627
  Serious: Yes (Other)
  Sender: FDA-Public Use
  Company Number: DE-MYLANLABS-2012S1019924

PATIENT
  Age: 19 Year
  Sex: Male
  Weight: 74 kg

DRUGS (1)
  1. CLOZAPINE [Suspect]
     Indication: SCHIZOPHRENIA
     Dosage: daily dose: 200 Mg millgram(s) every Days
     Route: 048
     Dates: start: 20120415, end: 20120508

REACTIONS (2)
  - Granulocytopenia [Recovered/Resolved]
  - Treatment noncompliance [Unknown]
